FAERS Safety Report 15124441 (Version 2)
Quarter: 2018Q3

REPORT INFORMATION
  Report Type: Spontaneous
  Country: RU (occurrence: RU)
  Receive Date: 20180710
  Receipt Date: 20180716
  Transmission Date: 20181010
  Serious: Yes (Other)
  Sender: FDA-Public Use
  Company Number: RU-GEHC-2018CSU002449

PATIENT

DRUGS (1)
  1. OMNIPAQUE [Suspect]
     Active Substance: IOHEXOL
     Indication: HEPATIC NEOPLASM
     Dosage: 100 ML, UNK
     Route: 042
     Dates: start: 20180616, end: 20180616

REACTIONS (4)
  - Hypotension [Recovered/Resolved]
  - Confusional state [Recovered/Resolved]
  - Urinary incontinence [Recovered/Resolved]
  - Dyspnoea [Recovered/Resolved]

NARRATIVE: CASE EVENT DATE: 20180616
